FAERS Safety Report 9476563 (Version 1)
Quarter: 2013Q3

REPORT INFORMATION
  Report Type: Spontaneous
  Country: US (occurrence: None)
  Receive Date: 20130823
  Receipt Date: 20130823
  Transmission Date: 20140515
  Serious: Yes (Disabling)
  Sender: FDA-Public Use
  Company Number: None

PATIENT
  Age: 48 Year
  Sex: Female

DRUGS (13)
  1. CORTISONE [Suspect]
     Indication: PERIARTHRITIS
     Dates: start: 20130218
  2. CORTISONE [Suspect]
     Indication: ROTATOR CUFF SYNDROME
     Dates: start: 20130218
  3. CYCLOBENZAPRINE [Concomitant]
  4. DIAZAPAM [Concomitant]
  5. MIRTAZAPINE [Concomitant]
  6. NAPROXEN [Concomitant]
  7. OXYCODONE [Concomitant]
  8. RANITIDINE [Concomitant]
  9. HYDROCODONE [Concomitant]
  10. MENTHOL RELIEF STICK [Concomitant]
  11. ICY HOT RUB [Concomitant]
  12. METAMUIL [Concomitant]
  13. ONE SOURCE WOMENS MULTI VITAMINS [Concomitant]

REACTIONS (5)
  - Burning sensation [None]
  - Injection site pain [None]
  - Tendonitis [None]
  - Rotator cuff syndrome [None]
  - Joint range of motion decreased [None]
